FAERS Safety Report 13000768 (Version 1)
Quarter: 2016Q4

REPORT INFORMATION
  Report Type: Spontaneous
  Country: US (occurrence: US)
  Receive Date: 20161206
  Receipt Date: 20161206
  Transmission Date: 20170207
  Serious: Yes (Other)
  Sender: FDA-Public Use
  Company Number: US-JNJCP-30000362956

PATIENT
  Sex: Female
  Weight: 73 kg

DRUGS (1)
  1. NEUTROGENA RAPID CLEAR STUBBORN ACNE CLEANSER [Suspect]
     Active Substance: BENZOYL PEROXIDE
     Indication: ACNE
     Dosage: LITTLE AMOUNT, ONCE DAILY
     Route: 061
     Dates: start: 20161118, end: 20161119

REACTIONS (2)
  - Ocular hyperaemia [Recovering/Resolving]
  - Application site swelling [Recovering/Resolving]

NARRATIVE: CASE EVENT DATE: 20161118
